FAERS Safety Report 5158271-2 (Version None)
Quarter: 2006Q4

REPORT INFORMATION
  Report Type: 
  Country: None (occurrence: None)
  Receive Date: 20061128
  Receipt Date: 20061122
  Transmission Date: 20070319
  Serious: Yes (Death, Hospitalization)
  Sender: FDA-Public Use
  Company Number: US-JNJFOC-20060906519

PATIENT
  Sex: Male
  Weight: 76 kg

DRUGS (20)
  1. REOPRO [Suspect]
     Indication: ANTIPLATELET THERAPY
  2. NITROGLYCERIN [Concomitant]
     Indication: ANGINA PECTORIS
  3. MORPHINE SULFATE [Concomitant]
     Indication: PAIN
  4. PANTOPRAZOLE SODIUM [Concomitant]
     Indication: GASTROINTESTINAL DISORDER
  5. SYNTHROID [Concomitant]
     Indication: HYPOTHYROIDISM
  6. REGULAR INSULIN [Concomitant]
     Indication: DIABETES MELLITUS INSULIN-DEPENDENT
  7. VALSARTAN [Concomitant]
     Indication: HYPERTENSION
  8. ACETYLCYSTEINE [Concomitant]
     Indication: PREMEDICATION
  9. HEPARIN [Concomitant]
     Indication: ANTICOAGULANT THERAPY
  10. DROPERIDOL [Concomitant]
     Indication: NAUSEA
  11. CODEINE [Concomitant]
     Indication: PAIN
  12. NUBAIN [Concomitant]
     Indication: PAIN
  13. BENADRYL [Concomitant]
     Indication: PREMEDICATION
  14. ACETYLSALICYLIC ACID SRT [Concomitant]
     Indication: CORONARY ARTERY DISEASE
  15. PHENYLEPHRINE [Concomitant]
     Indication: HEART RATE INCREASED
  16. DIAZEPAM [Concomitant]
     Indication: PREMEDICATION
  17. VERSED [Concomitant]
     Indication: PREMEDICATION
  18. METHYLPREDNISOLONE [Concomitant]
     Indication: PROPHYLAXIS
  19. ANGIOMAX [Concomitant]
  20. ISOVUE-128 [Concomitant]
     Indication: CORONARY ANGIOPLASTY

REACTIONS (4)
  - ATRIAL FIBRILLATION [None]
  - HAEMORRHAGE [None]
  - PNEUMONIA [None]
  - RENAL FAILURE ACUTE [None]
